FAERS Safety Report 9249158 (Version 1)
Quarter: 2013Q2

REPORT INFORMATION
  Report Type: Spontaneous
  Country: GB (occurrence: GB)
  Receive Date: 20130423
  Receipt Date: 20130423
  Transmission Date: 20140414
  Serious: Yes (Hospitalization, Other)
  Sender: FDA-Public Use
  Company Number: GB-BRISTOL-MYERS SQUIBB COMPANY-18798868

PATIENT
  Age: 44 Year
  Sex: Female
  Weight: 42 kg

DRUGS (4)
  1. ATAZANAVIR [Suspect]
     Indication: HIV INFECTION
     Dosage: CUM DOSE:42612.5. UNITS NOS
     Route: 048
     Dates: start: 20120712
  2. TRUVADA [Suspect]
     Indication: HIV INFECTION
     Dosage: CUM DOSE:1182383.543 UNITS NOS?TABLET
     Route: 048
     Dates: start: 20050823
  3. RITONAVIR [Suspect]
     Indication: HIV INFECTION
     Dosage: CUM DOSE:87304.16663 UNITS NOS
     Route: 048
     Dates: start: 20100712
  4. DIAZEPAM [Suspect]
     Indication: MUSCLE SPASTICITY
     Dosage: CUM DOSE: 14641.253 UNITS NOS
     Route: 048
     Dates: start: 20110801

REACTIONS (7)
  - Progressive multifocal leukoencephalopathy [Unknown]
  - Mobility decreased [Recovered/Resolved]
  - Fall [Recovered/Resolved]
  - Renal tubular disorder [Unknown]
  - Muscular weakness [Recovered/Resolved]
  - Blood phosphorus decreased [Unknown]
  - Proteinuria [Unknown]
